FAERS Safety Report 9398852 (Version 1)
Quarter: 2013Q3

REPORT INFORMATION
  Report Type: Spontaneous
  Country: PH (occurrence: PH)
  Receive Date: 20130713
  Receipt Date: 20130713
  Transmission Date: 20140515
  Serious: Yes (Death, Other)
  Sender: FDA-Public Use
  Company Number: PH-009507513-1307PHL005192

PATIENT
  Age: 62 Year
  Sex: Female

DRUGS (1)
  1. COZAAR [Suspect]
     Dosage: 100 MG, QD
     Route: 048

REACTIONS (1)
  - Myocardial infarction [Fatal]
